FAERS Safety Report 5355845-0 (Version None)
Quarter: 2007Q2

REPORT INFORMATION
  Report Type: 
  Country: None (occurrence: None)
  Receive Date: 20070530
  Receipt Date: 20061004
  Transmission Date: 20071010
  Serious: Yes (Disabling, Other)
  Sender: FDA-Public Use
  Company Number: US200610001121

PATIENT
  Age: 26 Year
  Sex: Female

DRUGS (2)
  1. ZYPREXA [Suspect]
     Indication: CHRONIC FATIGUE SYNDROME
     Dosage: ORAL
     Route: 048
     Dates: start: 20020601, end: 20030101
  2. CONCERTA [Concomitant]

REACTIONS (2)
  - HYPERSOMNIA [None]
  - WEIGHT INCREASED [None]
